FAERS Safety Report 12693102 (Version 1)
Quarter: 2016Q3

REPORT INFORMATION
  Report Type: Spontaneous
  Country: US (occurrence: None)
  Receive Date: 20160826
  Receipt Date: 20160826
  Transmission Date: 20161109
  Serious: Yes (Life-Threatening, Hospitalization, Disabling)
  Sender: FDA-Public Use
  Company Number: None

PATIENT
  Age: 67 Year
  Sex: Male
  Weight: 71.22 kg

DRUGS (1)
  1. HALDOL [Suspect]
     Active Substance: HALOPERIDOL
     Indication: DEMENTIA
     Route: 042
     Dates: start: 20160715

REACTIONS (5)
  - Tachycardia [None]
  - Chills [None]
  - Septic shock [None]
  - Unresponsive to stimuli [None]
  - Intestinal ischaemia [None]

NARRATIVE: CASE EVENT DATE: 20160715
